FAERS Safety Report 4842394-9 (Version None)
Quarter: 2005Q4

REPORT INFORMATION
  Report Type: 
  Country: None (occurrence: None)
  Receive Date: 20051201
  Receipt Date: 20050329
  Transmission Date: 20060501
  Serious: Yes (Hospitalization)
  Sender: FDA-Public Use
  Company Number: US-BRISTOL-MYERS SQUIBB COMPANY-12914206

PATIENT
  Age: 67 Year
  Sex: Female

DRUGS (4)
  1. CISPLATIN [Suspect]
     Indication: CHEMOTHERAPY
     Route: 042
     Dates: start: 20040923, end: 20040923
  2. REGLAN [Concomitant]
     Indication: NAUSEA
     Route: 048
     Dates: start: 20040601
  3. NEXIUM [Concomitant]
     Indication: GASTROOESOPHAGEAL REFLUX DISEASE
     Route: 048
     Dates: start: 20021101
  4. VICODIN [Concomitant]
     Indication: PAIN
     Route: 048
     Dates: start: 20040701

REACTIONS (16)
  - ABDOMINAL WALL INFECTION [None]
  - ASTHENIA [None]
  - BLOOD PRESSURE INCREASED [None]
  - BLOOD PRESSURE ORTHOSTATIC [None]
  - CHILLS [None]
  - COORDINATION ABNORMAL [None]
  - DRUG INEFFECTIVE [None]
  - HEART RATE INCREASED [None]
  - HYPOKALAEMIA [None]
  - HYPOMAGNESAEMIA [None]
  - LOBAR PNEUMONIA [None]
  - NAUSEA [None]
  - OEDEMA [None]
  - PLEURAL EFFUSION [None]
  - SYNCOPE [None]
  - VOMITING [None]
